FAERS Safety Report 4994986-4 (Version None)
Quarter: 2006Q2

REPORT INFORMATION
  Report Type: 
  Country: None (occurrence: None)
  Receive Date: 20060503
  Receipt Date: 20060421
  Transmission Date: 20061013
  Serious: Yes (Life-Threatening)
  Sender: FDA-Public Use
  Company Number: ENTC2006-0116

PATIENT
  Age: 82 Year
  Sex: Female

DRUGS (5)
  1. STALEVO 100 [Suspect]
     Indication: PARKINSON'S DISEASE
     Dosage: 50/12.5 ORAL
     Route: 048
     Dates: start: 20021013, end: 20060328
  2. DOMPERIDONE [Concomitant]
  3. SINEMET CR [Concomitant]
  4. DETRUSITOL [Concomitant]
  5. MIRTAZAPINE [Concomitant]

REACTIONS (1)
  - DEPRESSED LEVEL OF CONSCIOUSNESS [None]
